FAERS Safety Report 15921003 (Version 1)
Quarter: 2019Q1

REPORT INFORMATION
  Report Type: Spontaneous
  Country: US (occurrence: US)
  Receive Date: 20190205
  Receipt Date: 20190205
  Transmission Date: 20190417
  Serious: No
  Sender: FDA-Public Use
  Company Number: US-GALDERMA-US18047455

PATIENT
  Age: 60 Year
  Sex: Male

DRUGS (2)
  1. MICARDIS [Concomitant]
     Active Substance: TELMISARTAN
     Indication: HYPERTENSION
     Dosage: 80 MG
     Route: 048
  2. SOOLANTRA [Suspect]
     Active Substance: IVERMECTIN
     Indication: ROSACEA
     Dosage: 1%
     Route: 061
     Dates: start: 20181101, end: 20181108

REACTIONS (5)
  - Skin warm [Recovering/Resolving]
  - Skin burning sensation [Recovering/Resolving]
  - Erythema [Recovering/Resolving]
  - Swelling face [Recovering/Resolving]
  - Swelling of eyelid [Recovering/Resolving]

NARRATIVE: CASE EVENT DATE: 20181106
